FAERS Safety Report 5363095-7 (Version None)
Quarter: 2007Q2

REPORT INFORMATION
  Report Type: 
  Country: None (occurrence: None)
  Receive Date: 20070615
  Receipt Date: 20070601
  Transmission Date: 20071010
  Serious: Yes (Death)
  Sender: FDA-Public Use
  Company Number: 2007JP002507

PATIENT

DRUGS (2)
  1. PROGRAF [Suspect]
     Indication: LIVER TRANSPLANT
  2. STEROID FORMULATION [Concomitant]

REACTIONS (3)
  - FAILURE TO THRIVE [None]
  - PNEUMONIA [None]
  - RESPIRATORY FAILURE [None]
